FAERS Safety Report 8138072-3 (Version None)
Quarter: 2012Q1

REPORT INFORMATION
  Report Type: 
  Country: None (occurrence: None)
  Receive Date: 20120215
  Receipt Date: 20120208
  Transmission Date: 20120608
  Serious: Yes (Death, Hospitalization)
  Sender: FDA-Public Use
  Company Number: CA-CELGENEUS-028-C5013-11043771

PATIENT
  Sex: Male
  Weight: 83.1 kg

DRUGS (5)
  1. LENALIDOMIDE [Suspect]
     Dosage: 10 MILLIGRAM
     Route: 048
     Dates: start: 20110224, end: 20110420
  2. DEFEROXAMINE MESYLATE [Concomitant]
     Route: 065
  3. LENALIDOMIDE [Suspect]
     Dosage: 10 MILLIGRAM
     Route: 048
     Dates: start: 20110224, end: 20110420
  4. PIPTAZONE [Concomitant]
     Route: 065
  5. CLOXACILLIN SODIUM [Concomitant]
     Route: 065

REACTIONS (4)
  - SEPSIS [None]
  - PANCYTOPENIA [None]
  - LUNG INFECTION [None]
  - MYELODYSPLASTIC SYNDROME [None]
